FAERS Safety Report 23579694 (Version 1)
Quarter: 2024Q1

REPORT INFORMATION
  Report Type: Spontaneous
  Country: US (occurrence: None)
  Receive Date: 20240228
  Receipt Date: 20240228
  Transmission Date: 20240409
  Serious: Yes (Other)
  Sender: FDA-Public Use
  Company Number: None

PATIENT
  Age: 62 Year
  Sex: Female

DRUGS (1)
  1. TERIPARATIDE [Suspect]
     Active Substance: TERIPARATIDE
     Indication: Senile osteoporosis
     Dosage: 20 UGM DAILY SUABCUTANEOUS
     Route: 058
     Dates: end: 20240228

REACTIONS (3)
  - Abdominal pain [None]
  - Migraine [None]
  - Constipation [None]

NARRATIVE: CASE EVENT DATE: 20231228
